FAERS Safety Report 7642362-8 (Version None)
Quarter: 2011Q3

REPORT INFORMATION
  Report Type: 
  Country: None (occurrence: None)
  Receive Date: 20110728
  Receipt Date: 20110721
  Transmission Date: 20111222
  Serious: Yes (Hospitalization)
  Sender: FDA-Public Use
  Company Number: FR-B.I. PHARMACEUTICALS,INC./RIDGEFIELD-2011-FF-00654FF

PATIENT
  Sex: Female

DRUGS (5)
  1. TRANDATE [Suspect]
     Route: 048
     Dates: start: 20060101, end: 20110126
  2. MICARDIS [Suspect]
     Dosage: 40 MG
     Route: 048
     Dates: start: 20060101, end: 20110126
  3. LORAZEPAM [Concomitant]
     Dosage: 1 MG
  4. ARICEPT [Suspect]
     Dosage: 10 MG
     Route: 048
     Dates: start: 20060101, end: 20110126
  5. ZOLPIDEM [Concomitant]

REACTIONS (8)
  - DISORIENTATION [None]
  - MALAISE [None]
  - EYE MOVEMENT DISORDER [None]
  - VOMITING [None]
  - CONFUSIONAL STATE [None]
  - FALL [None]
  - DRUG INTERACTION [None]
  - SINUS BRADYCARDIA [None]
